FAERS Safety Report 23722556 (Version 1)
Quarter: 2024Q2

REPORT INFORMATION
  Report Type: Report from Study
  Country: CA (occurrence: CA)
  Receive Date: 20240409
  Receipt Date: 20240409
  Transmission Date: 20240716
  Serious: Yes (Hospitalization, Other)
  Sender: FDA-Public Use
  Company Number: CA-AKCEA THERAPEUTICS, INC.-2024IS003151

PATIENT

DRUGS (11)
  1. TEGSEDI [Suspect]
     Active Substance: INOTERSEN SODIUM
     Indication: Hereditary neuropathic amyloidosis
     Dosage: 284 MILLIGRAM, QW
     Route: 058
     Dates: start: 20190227
  2. TEGSEDI [Suspect]
     Active Substance: INOTERSEN SODIUM
     Dosage: 284 MILLIGRAM (PER 1.5), QW
     Route: 058
     Dates: start: 201803
  3. GABAPENTIN [Concomitant]
     Active Substance: GABAPENTIN
     Indication: Neuralgia
     Dosage: 400 MG, QD
     Route: 048
     Dates: start: 20180116
  4. GABAPENTIN [Concomitant]
     Active Substance: GABAPENTIN
     Indication: Pain
  5. GABAPENTIN [Concomitant]
     Active Substance: GABAPENTIN
     Indication: Restless legs syndrome
  6. RABEPRAZOLE [Concomitant]
     Active Substance: RABEPRAZOLE
     Indication: Gastrooesophageal reflux disease
     Dosage: 10 MG, BID
     Route: 048
     Dates: start: 20180412
  7. DIFLUNISAL [Concomitant]
     Active Substance: DIFLUNISAL
     Indication: Amyloidosis
     Dosage: 500 MILLIGRAM, BID
     Route: 048
     Dates: start: 20171211
  8. DIFLUNISAL [Concomitant]
     Active Substance: DIFLUNISAL
     Dosage: 500 MILLIGRAM, BID
     Route: 048
     Dates: start: 201711, end: 202010
  9. VITAMIN A [Concomitant]
     Active Substance: VITAMIN A
     Indication: Supplementation therapy
     Dosage: UNK (120,000 UNITS/DAY, GRADUALLY INCREASED SINCE BEGINNING)
     Route: 048
     Dates: start: 201807
  10. GREEN TEA LEAF [Concomitant]
     Active Substance: GREEN TEA LEAF
     Indication: Product used for unknown indication
     Dosage: 400 MG, QD
     Route: 048
  11. MINERALS\VITAMINS [Concomitant]
     Active Substance: MINERALS\VITAMINS
     Indication: Vitamin A deficiency
     Dosage: UNK
     Route: 065
     Dates: start: 201801, end: 201807

REACTIONS (6)
  - Eye disorder [Recovered/Resolved with Sequelae]
  - Vitreous disorder [Recovered/Resolved]
  - Vision blurred [Recovered/Resolved]
  - Dry eye [Unknown]
  - Vitreous floaters [Not Recovered/Not Resolved]
  - Vitreous opacities [Unknown]

NARRATIVE: CASE EVENT DATE: 20190307
